FAERS Safety Report 6372166-8 (Version None)
Quarter: 2009Q3

REPORT INFORMATION
  Report Type: 
  Country: None (occurrence: None)
  Receive Date: 20090917
  Receipt Date: 20090904
  Transmission Date: 20100115
  Serious: Yes (Hospitalization, Disabling, Other)
  Sender: FDA-Public Use
  Company Number: ADR17912009 (ARROW GENERICS NO.: AG4527)

PATIENT
  Age: 68 Year
  Sex: Female

DRUGS (12)
  1. CITALOPRAM HYDROBROMIDE [Suspect]
     Dosage: 20 MG PER DAY
     Route: 048
     Dates: start: 20070129, end: 20070131
  2. MIRTAZAPINE 15-30 MG [Concomitant]
  3. ESCITALOPRAM [Concomitant]
  4. CO-AMILOFRUSE 1 DF [Concomitant]
  5. DIAZEPAM [Concomitant]
  6. DIGOXIN 250 UG [Concomitant]
  7. NICORANDIL 10 MG [Concomitant]
  8. PARACETAMOL 1 G [Concomitant]
  9. PERINDOPRIL 2 MG [Concomitant]
  10. SENNA 15 MG [Concomitant]
  11. SIMVASTATIN [Concomitant]
  12. WARFARIN [Concomitant]

REACTIONS (4)
  - DEPERSONALISATION [None]
  - DYSPHAGIA [None]
  - DYSTONIA [None]
  - NO THERAPEUTIC RESPONSE [None]
